FAERS Safety Report 24857940 (Version 1)
Quarter: 2025Q1

REPORT INFORMATION
  Report Type: Spontaneous
  Country: BE (occurrence: BE)
  Receive Date: 20250117
  Receipt Date: 20250117
  Transmission Date: 20250408
  Serious: Yes (Life-Threatening, Hospitalization)
  Sender: BOEHRINGER INGELHEIM
  Company Number: None

PATIENT
  Age: 79 Year
  Sex: Female
  Weight: 74 kg

DRUGS (7)
  1. SYNJARDY [Suspect]
     Active Substance: EMPAGLIFLOZIN\METFORMIN HYDROCHLORIDE
     Indication: Type 2 diabetes mellitus
     Dosage: 2 / DAY
     Dates: start: 20200818, end: 20240908
  2. D-CURE 25 000 UI [Concomitant]
     Indication: Product used for unknown indication
  3. FERROGRADUMET? [Concomitant]
     Indication: Product used for unknown indication
  4. INSULIN ASPART [Concomitant]
     Active Substance: INSULIN ASPART
     Indication: Product used for unknown indication
  5. L-Thyroxine Christiaens 100 MIKROGRAMM [Concomitant]
     Indication: Product used for unknown indication
  6. PANTOPRAZOLE EG 20 MG [Concomitant]
     Indication: Product used for unknown indication
  7. STEOVIT Forte 1000 MG/800 U.I. [Concomitant]
     Indication: Product used for unknown indication

REACTIONS (4)
  - Candida sepsis [Recovered/Resolved]
  - Enterococcal infection [Recovered/Resolved]
  - Hydronephrosis [Recovered/Resolved]
  - Urinary tract candidiasis [Recovered/Resolved]

NARRATIVE: CASE EVENT DATE: 20240908
